FAERS Safety Report 19282023 (Version 9)
Quarter: 2022Q3

REPORT INFORMATION
  Report Type: Report from Study
  Country: SE (occurrence: None)
  Receive Date: 20210520
  Receipt Date: 20220720
  Transmission Date: 20221027
  Serious: Yes (Hospitalization)
  Sender: FDA-Public Use
  Company Number: SE-EISAI MEDICAL RESEARCH-EC-2021-092658

PATIENT
  Age: 15 Year
  Sex: Female
  Weight: 36 kg

DRUGS (13)
  1. LENVATINIB [Suspect]
     Active Substance: LENVATINIB
     Indication: Osteosarcoma
     Route: 048
     Dates: start: 20210427, end: 20210527
  2. LENVATINIB [Suspect]
     Active Substance: LENVATINIB
     Route: 048
     Dates: start: 20210602, end: 20210607
  3. LENVATINIB [Suspect]
     Active Substance: LENVATINIB
     Route: 048
     Dates: start: 20210701, end: 20211005
  4. LENVATINIB [Suspect]
     Active Substance: LENVATINIB
     Route: 048
     Dates: start: 20211103, end: 20220510
  5. IFOSFAMIDE [Suspect]
     Active Substance: IFOSFAMIDE
     Indication: Osteosarcoma
     Route: 041
     Dates: start: 20210427, end: 20210520
  6. IFOSFAMIDE [Suspect]
     Active Substance: IFOSFAMIDE
     Route: 041
     Dates: start: 20210701, end: 20210813
  7. ETOPOSIDE [Suspect]
     Active Substance: ETOPOSIDE
     Indication: Osteosarcoma
     Route: 041
     Dates: start: 20210427, end: 20210520
  8. ETOPOSIDE [Suspect]
     Active Substance: ETOPOSIDE
     Route: 041
     Dates: start: 20210701, end: 20210813
  9. LEVOTHYROXINE SODIUM [Concomitant]
     Active Substance: LEVOTHYROXINE SODIUM
  10. FILGRASTIM [Concomitant]
     Active Substance: FILGRASTIM
     Indication: Neutrophil count decreased
     Route: 058
     Dates: start: 20210504, end: 20210510
  11. GRANISETRON [Concomitant]
     Active Substance: GRANISETRON
     Indication: Nausea
     Route: 048
     Dates: start: 20210505
  12. RIFAMPIN [Concomitant]
     Active Substance: RIFAMPIN
     Indication: Localised infection
     Route: 048
  13. CIPROFLOXACIN [Concomitant]
     Active Substance: CIPROFLOXACIN
     Indication: Localised infection
     Route: 048

REACTIONS (4)
  - Osteomyelitis [Recovered/Resolved with Sequelae]
  - Febrile neutropenia [Recovered/Resolved]
  - Pyrexia [Recovered/Resolved]
  - Pneumothorax [Recovered/Resolved]

NARRATIVE: CASE EVENT DATE: 20210510
